FAERS Safety Report 9859140 (Version 1)
Quarter: 2014Q1

REPORT INFORMATION
  Report Type: Spontaneous
  Country: DE (occurrence: DE)
  Receive Date: 20140131
  Receipt Date: 20140131
  Transmission Date: 20141002
  Serious: Yes (Death)
  Sender: FDA-Public Use
  Company Number: DE-JNJFOC-20140116488

PATIENT
  Sex: Female

DRUGS (7)
  1. XARELTO [Suspect]
     Indication: EMBOLISM VENOUS
     Route: 048
  2. XARELTO [Suspect]
     Indication: EMBOLISM VENOUS
     Route: 048
  3. XARELTO [Suspect]
     Indication: PULMONARY EMBOLISM
     Route: 048
  4. XARELTO [Suspect]
     Indication: PULMONARY EMBOLISM
     Route: 048
  5. FENTANYL [Concomitant]
     Dosage: 25 G/H
     Route: 062
  6. PANTOPRAZOLE [Concomitant]
     Route: 065
  7. NOVAMINSULFON [Concomitant]
     Route: 065

REACTIONS (2)
  - Death [Fatal]
  - Haemoglobin decreased [Fatal]
